FAERS Safety Report 20848933 (Version 3)
Quarter: 2022Q3

REPORT INFORMATION
  Report Type: Report from Study
  Country: CA (occurrence: CA)
  Receive Date: 20220519
  Receipt Date: 20220808
  Transmission Date: 20221027
  Serious: Yes (Other)
  Sender: FDA-Public Use
  Company Number: CA-NOVARTISPH-NVSC2022CA036202

PATIENT
  Age: 76 Year
  Sex: Female

DRUGS (3)
  1. COSENTYX [Suspect]
     Active Substance: SECUKINUMAB
     Indication: Psoriatic arthropathy
     Dosage: 300 MG, QMO
     Route: 058
     Dates: start: 20201110
  2. COSENTYX [Suspect]
     Active Substance: SECUKINUMAB
     Dosage: 300 MG, Q2W
     Route: 058
  3. COSENTYX [Suspect]
     Active Substance: SECUKINUMAB
     Dosage: 300 MG, Q2W
     Route: 058
     Dates: start: 20220618

REACTIONS (16)
  - Gastrointestinal carcinoma [Unknown]
  - Atrial fibrillation [Unknown]
  - Joint swelling [Unknown]
  - Peripheral swelling [Unknown]
  - Erythema [Unknown]
  - Arthritis [Unknown]
  - Musculoskeletal stiffness [Unknown]
  - Back disorder [Unknown]
  - Back pain [Unknown]
  - Cardiac disorder [Unknown]
  - Skin exfoliation [Unknown]
  - Movement disorder [Unknown]
  - Grip strength decreased [Unknown]
  - Pain [Unknown]
  - General physical health deterioration [Unknown]
  - Off label use [Unknown]

NARRATIVE: CASE EVENT DATE: 20210801
